FAERS Safety Report 4679869-1 (Version None)
Quarter: 2005Q2

REPORT INFORMATION
  Report Type: 
  Country: None (occurrence: None)
  Receive Date: 20050602
  Receipt Date: 20041115
  Transmission Date: 20051028
  Serious: Yes (Other)
  Sender: FDA-Public Use
  Company Number: US-GLAXOSMITHKLINE-A0534021A

PATIENT

DRUGS (1)
  1. AUGMENTIN [Suspect]
     Indication: ILL-DEFINED DISORDER

REACTIONS (1)
  - CLOSTRIDIUM COLITIS [None]
